FAERS Safety Report 21484589 (Version 1)
Quarter: 2022Q4

REPORT INFORMATION
  Report Type: Spontaneous
  Country: US (occurrence: US)
  Receive Date: 20221020
  Receipt Date: 20221020
  Transmission Date: 20230113
  Serious: Yes (Other)
  Sender: FDA-Public Use
  Company Number: US-MLMSERVICE-20221005-3836358-1

PATIENT
  Age: 39 Year
  Sex: Male

DRUGS (8)
  1. GEMCITABINE [Suspect]
     Active Substance: GEMCITABINE
     Indication: NUT midline carcinoma
     Dosage: 1500 MG/M2, DAY 1, 15 OF 28-DAY CYCLE
     Route: 065
  2. GEMCITABINE [Suspect]
     Active Substance: GEMCITABINE
     Indication: Keratinising squamous cell carcinoma of nasopharynx
  3. GEMCITABINE [Suspect]
     Active Substance: GEMCITABINE
     Indication: Metastases to lymph nodes
  4. GEMCITABINE [Suspect]
     Active Substance: GEMCITABINE
     Indication: Metastases to lung
  5. PACLITAXEL [Suspect]
     Active Substance: PACLITAXEL
     Indication: NUT midline carcinoma
     Dosage: 175 MG/M2, DAY 1, 15 OF 28-DAY CYCLE
     Route: 065
  6. PACLITAXEL [Suspect]
     Active Substance: PACLITAXEL
     Indication: Keratinising squamous cell carcinoma of nasopharynx
  7. PACLITAXEL [Suspect]
     Active Substance: PACLITAXEL
     Indication: Metastases to lymph nodes
  8. PACLITAXEL [Suspect]
     Active Substance: PACLITAXEL
     Indication: Metastases to lung

REACTIONS (3)
  - Soft tissue infection [Unknown]
  - Neuropathy peripheral [Unknown]
  - Febrile neutropenia [Unknown]
